FAERS Safety Report 19847874 (Version 1)
Quarter: 2021Q3

REPORT INFORMATION
  Report Type: Spontaneous
  Country: CN (occurrence: CN)
  Receive Date: 20210917
  Receipt Date: 20210917
  Transmission Date: 20211014
  Serious: Yes (Other)
  Sender: FDA-Public Use
  Company Number: CN-TERSERA THERAPEUTICS LLC-2021TRS004348

PATIENT

DRUGS (4)
  1. FLUTAMIDE. [Concomitant]
     Active Substance: FLUTAMIDE
     Indication: PROSTATE CANCER
     Dosage: 250 MG, TID
     Route: 065
  2. GOSERELIN [Suspect]
     Active Substance: GOSERELIN
     Indication: PROSTATE CANCER
     Dosage: 3.6 MG
     Route: 058
  3. BICALUTAMIDE. [Suspect]
     Active Substance: BICALUTAMIDE
     Dosage: 150 MG
     Route: 048
     Dates: start: 201501
  4. BICALUTAMIDE. [Suspect]
     Active Substance: BICALUTAMIDE
     Indication: PROSTATE CANCER
     Dosage: 50 MG
     Route: 048

REACTIONS (1)
  - Hormone-refractory prostate cancer [Unknown]

NARRATIVE: CASE EVENT DATE: 201308
